FAERS Safety Report 10032681 (Version 2)
Quarter: 2014Q2

REPORT INFORMATION
  Report Type: Spontaneous
  Country: JP (occurrence: JP)
  Receive Date: 20140324
  Receipt Date: 20140408
  Transmission Date: 20141212
  Serious: Yes (Other)
  Sender: FDA-Public Use
  Company Number: JP-BAYER-2014-038921

PATIENT
  Age: 69 Year
  Sex: Male

DRUGS (2)
  1. BAYASPIRIN [Suspect]
     Dosage: UNK
     Route: 048
     Dates: start: 201311
  2. PLAVIX [Suspect]
     Dosage: UNK
     Route: 048

REACTIONS (3)
  - Tubulointerstitial nephritis [Recovered/Resolved]
  - Eosinophil count increased [Recovered/Resolved]
  - Renal impairment [Recovered/Resolved]
